FAERS Safety Report 16669259 (Version 2)
Quarter: 2019Q3

REPORT INFORMATION
  Report Type: Not Available
  Country: US (occurrence: US)
  Receive Date: 20190805
  Receipt Date: 20190912
  Transmission Date: 20191004
  Serious: No
  Sender: FDA-Public Use
  Company Number: US-NEUROCRINE BIOSCIENCES INC.-2019NBI02043

PATIENT
  Age: 58 Year
  Sex: Female

DRUGS (33)
  1. INGREZZA [Suspect]
     Active Substance: VALBENAZINE
     Route: 048
     Dates: start: 2019, end: 2019
  2. TYLENOL [Concomitant]
     Active Substance: ACETAMINOPHEN
     Dosage: TAKE 325-650 MG BY MOUTH EVERY SIX HOURS AS NEEDED
     Route: 048
  3. BISCOLAX [Concomitant]
     Active Substance: BISACODYL
     Indication: CONSTIPATION
     Route: 054
  4. MULTIVITAMIN [Concomitant]
     Active Substance: VITAMINS
     Route: 048
  5. DEPAKOTE [Concomitant]
     Active Substance: DIVALPROEX SODIUM
     Dosage: AT BEDTIME
     Route: 048
  6. GLUCAGON EMERGENCY KIT [Concomitant]
     Active Substance: GLUCAGON
     Dosage: INJECT AS DIRECTED
  7. ZYPREXA [Concomitant]
     Active Substance: OLANZAPINE
     Dosage: AT BEDTIME
     Route: 048
  8. VITAMIN E [Concomitant]
     Active Substance: .ALPHA.-TOCOPHEROL
     Route: 048
  9. TYLENOL [Concomitant]
     Active Substance: ACETAMINOPHEN
     Route: 048
  10. DIABETIC TUSSIN DM [Concomitant]
     Active Substance: DEXTROMETHORPHAN HYDROBROMIDE\GUAIFENESIN
     Dosage: 10-100 MG/5 ML LIQUID TAKE 10 MLS BY MOUTH EVERY 6 HOURS AS NEEDED
     Route: 048
  11. ARTIFICIAL TEARS [Concomitant]
     Active Substance: GLYCERIN\HYPROMELLOSES\POLYETHYLENE GLYCOL 400
     Dosage: 1 DROP
     Route: 047
  12. VITAMIN D3 [Concomitant]
     Active Substance: CHOLECALCIFEROL
     Route: 048
  13. NOVOLOG [Concomitant]
     Active Substance: INSULIN ASPART
     Dosage: 100 UNIT/ML , INJECT 26 UNITS INTO THE SKIN 2 TIME A DAY
     Route: 058
  14. ZESTRIL [Concomitant]
     Active Substance: LISINOPRIL
     Route: 048
  15. FLEET ADULT [Concomitant]
     Route: 054
  16. TRIHEXYPHENIDYL [Concomitant]
     Active Substance: TRIHEXYPHENIDYL
     Dosage: AT BEDTIME
     Route: 048
  17. INGREZZA [Suspect]
     Active Substance: VALBENAZINE
     Indication: TARDIVE DYSKINESIA
     Route: 048
     Dates: start: 20190613, end: 20190625
  18. INGREZZA [Suspect]
     Active Substance: VALBENAZINE
     Route: 048
     Dates: start: 20190626, end: 2019
  19. ASPIRIN 81 [Concomitant]
     Active Substance: ASPIRIN
     Route: 048
  20. LIPITOR [Concomitant]
     Active Substance: ATORVASTATIN CALCIUM
     Route: 048
  21. NOVOLOG [Concomitant]
     Active Substance: INSULIN ASPART
     Dosage: 100 UNIT/ML , INJECT 18 UNITS EVERY MORNING
     Route: 058
  22. NOVOLOG [Concomitant]
     Active Substance: INSULIN ASPART
     Indication: BLOOD GLUCOSE INCREASED
     Dosage: 100 UNIT/ML , INJECT 5 UNITS INTO THE SKIN 1 TIME A DAY
     Route: 058
  23. NOVOLOG [Concomitant]
     Active Substance: INSULIN ASPART
     Dosage: INJECT INTO THE SKIN. PER SLIDING SCALE
     Route: 058
  24. DEPO-PROVERA [Concomitant]
     Active Substance: MEDROXYPROGESTERONE ACETATE
     Route: 030
  25. ZYPREXA [Concomitant]
     Active Substance: OLANZAPINE
     Route: 048
  26. LYRICA [Concomitant]
     Active Substance: PREGABALIN
     Dosage: AT BEDTIME
     Route: 048
  27. TOUJEO MAX U300 SOLOSTAR [Concomitant]
     Dosage: 300 UNIT/ML (3 ML) INPN - INJECT 26 UNITS INTO THE SKIN AT BEDTIME
     Route: 058
  28. BIOTENE DENT [Concomitant]
     Dosage: PLACE ONTO TEETH
     Route: 004
  29. LASIX [Concomitant]
     Active Substance: FUROSEMIDE
     Route: 048
  30. ULTRAM [Concomitant]
     Active Substance: TRAMADOL HYDROCHLORIDE
     Route: 048
  31. LEVOTHYROXINE. [Concomitant]
     Active Substance: LEVOTHYROXINE
     Route: 048
  32. MAGNESIUM HYDROXIDE. [Concomitant]
     Active Substance: MAGNESIUM HYDROXIDE
     Indication: CONSTIPATION
     Dosage: 400MG/5 ML; TAKE 30 MLS
     Route: 048
  33. LAMISIL [Concomitant]
     Active Substance: TERBINAFINE HYDROCHLORIDE
     Dosage: APPLY TO RIGHT CALF TOPICALLY AS NEEDED

REACTIONS (4)
  - Sluggishness [Recovered/Resolved]
  - Balance disorder [Recovered/Resolved]
  - Somnolence [Unknown]
  - Off label use [Unknown]

NARRATIVE: CASE EVENT DATE: 2019
